FAERS Safety Report 9164981 (Version 2)
Quarter: 2013Q1

REPORT INFORMATION
  Report Type: Spontaneous
  Country: US (occurrence: None)
  Receive Date: 20130226
  Receipt Date: 20130305
  Transmission Date: 20140127
  Serious: Yes (Hospitalization)
  Sender: FDA-Public Use
  Company Number: ACO_34389_2013

PATIENT
  Age: 58 Year
  Sex: Female

DRUGS (1)
  1. AMPYRA [Suspect]
     Indication: MULTIPLE SCLEROSIS
     Route: 048
     Dates: start: 201203

REACTIONS (7)
  - Ankle fracture [None]
  - Muscular weakness [None]
  - Fall [None]
  - Balance disorder [None]
  - Hypoaesthesia [None]
  - Dizziness [None]
  - Inappropriate schedule of drug administration [None]
